FAERS Safety Report 5401739-1 (Version None)
Quarter: 2007Q3

REPORT INFORMATION
  Report Type: 
  Country: None (occurrence: None)
  Receive Date: 20070731
  Receipt Date: 20070719
  Transmission Date: 20080115
  Serious: Yes (Hospitalization, Other)
  Sender: FDA-Public Use
  Company Number: US-AMGEN-US235912

PATIENT
  Sex: Male

DRUGS (2)
  1. ENBREL [Suspect]
     Indication: PSORIASIS
     Route: 058
     Dates: start: 20070315, end: 20070719
  2. CYCLOSPORINE [Concomitant]
     Route: 065
     Dates: start: 20070411

REACTIONS (3)
  - ABASIA [None]
  - BLOOD GLUCOSE DECREASED [None]
  - MUSCULAR WEAKNESS [None]
